FAERS Safety Report 9495414 (Version 2)
Quarter: 2013Q4

REPORT INFORMATION
  Report Type: Spontaneous
  Country: IE (occurrence: IE)
  Receive Date: 20130903
  Receipt Date: 20131017
  Transmission Date: 20140711
  Serious: Yes (Other)
  Sender: FDA-Public Use
  Company Number: IE-ASTRAZENECA-2013SE65203

PATIENT
  Sex: Male

DRUGS (1)
  1. MARCAIN HEAVY [Suspect]
     Indication: HIP SURGERY
     Dosage: 5 MG/ML
     Route: 037

REACTIONS (2)
  - Hypotension [Unknown]
  - Drug ineffective [Unknown]
